FAERS Safety Report 18071087 (Version 1)
Quarter: 2020Q3

REPORT INFORMATION
  Report Type: Spontaneous
  Country: US (occurrence: US)
  Receive Date: 20200724
  Receipt Date: 20200724
  Transmission Date: 20201103
  Serious: Yes (Death)
  Sender: FDA-Public Use
  Company Number: None

PATIENT
  Age: 81 Year
  Sex: Male
  Weight: 75.9 kg

DRUGS (19)
  1. CARVEDILOL 3.125 MG PO BID [Concomitant]
     Dates: start: 20200707, end: 20200718
  2. TICAGRELOR 90 MG PO Q12HR [Concomitant]
     Dates: start: 20200707, end: 20200718
  3. FLUCONAZOLE 100 MG PO ONCE DAILY [Concomitant]
     Dates: start: 20200709, end: 20200712
  4. ATORVASTATIN 80 MG PO HS [Concomitant]
     Dates: start: 20200707, end: 20200717
  5. REMDESIVIR. [Suspect]
     Active Substance: REMDESIVIR
     Indication: COVID-19 PNEUMONIA
     Route: 042
     Dates: start: 20200708, end: 20200712
  6. ALBUTEROL MDI RT BID [Concomitant]
     Dates: start: 20200708, end: 20200718
  7. DEXAMETHASONE 5 MG IV ONCE DAILY [Concomitant]
     Dates: start: 20200707, end: 20200718
  8. THIAMINE 100 MG PO ONCE DAILY [Concomitant]
     Dates: start: 20200710, end: 20200718
  9. EZETIMIBE 10 MG PO ONCE DAILY [Concomitant]
     Dates: start: 20200707, end: 20200718
  10. ENOXAPARIN 80 MG SQ Q12HR [Concomitant]
     Dates: start: 20200706, end: 20200718
  11. VALPROATE SODIUM 500 MG PO HS [Concomitant]
     Dates: start: 20200709, end: 20200717
  12. SPIRONOLACTONE 25 MG PO DAILY [Concomitant]
     Dates: start: 20200712, end: 20200718
  13. MEGESTROL 400 MG PO BID [Concomitant]
     Dates: start: 20200709, end: 20200712
  14. FUROSEMIDE 40 MG IV ONCE DAILY [Concomitant]
     Dates: start: 20200714, end: 20200718
  15. ASA 81 MG PO ONCE DAILY [Concomitant]
     Dates: start: 20200707, end: 20200716
  16. CLINIMIX E 2.75%?5% [Concomitant]
     Dates: start: 20200709, end: 20200715
  17. TPN CUSTOM [Concomitant]
     Dates: start: 20200715, end: 20200717
  18. ENTRESTO 24/26 PO BID [Concomitant]
     Dates: start: 20200709, end: 20200718
  19. PANTOPRAZOLE 40 MG PO ONCE DAILY [Concomitant]
     Dates: start: 20200710, end: 20200718

REACTIONS (4)
  - Blood glucose increased [None]
  - Glomerular filtration rate decreased [None]
  - Blood urea increased [None]
  - Blood creatinine increased [None]

NARRATIVE: CASE EVENT DATE: 20200718
